FAERS Safety Report 26083748 (Version 2)
Quarter: 2025Q4

REPORT INFORMATION
  Report Type: Spontaneous
  Country: US (occurrence: US)
  Receive Date: 20251124
  Receipt Date: 20251127
  Transmission Date: 20260118
  Serious: Yes (Life-Threatening, Other)
  Sender: PFIZER
  Company Number: US-PFIZER INC-PV202500133590

PATIENT
  Age: 23 Year
  Sex: Female

DRUGS (18)
  1. FOSPHENYTOIN SODIUM [Suspect]
     Active Substance: FOSPHENYTOIN SODIUM
     Indication: New onset refractory status epilepticus
     Dosage: 150 MG, 3X/DAY
  2. LEVETIRACETAM [Suspect]
     Active Substance: LEVETIRACETAM
     Indication: New onset refractory status epilepticus
     Dosage: 2 G, 2X/DAY
     Route: 042
  3. METHYLPREDNISOLONE SODIUM SUCCINATE [Suspect]
     Active Substance: METHYLPREDNISOLONE SODIUM SUCCINATE
     Indication: Inflammation
     Dosage: 1 G, 1X/DAY
     Route: 042
  4. ANAKINRA [Suspect]
     Active Substance: ANAKINRA
     Indication: New onset refractory status epilepticus
     Dosage: 100 MG, 4X/DAY
  5. CANNABIDIOL [Suspect]
     Active Substance: CANNABIDIOL
     Indication: New onset refractory status epilepticus
     Dosage: 10 MG/KG, 2X/DAY
  6. CLOBAZAM [Suspect]
     Active Substance: CLOBAZAM
     Indication: New onset refractory status epilepticus
     Dosage: 40 MG, 2X/DAY
  7. CLONAZEPAM [Suspect]
     Active Substance: CLONAZEPAM
     Indication: New onset refractory status epilepticus
     Dosage: 4 MG, 3X/DAY
  8. HUMAN IMMUNOGLOBULIN G [Suspect]
     Active Substance: HUMAN IMMUNOGLOBULIN G
     Indication: New onset refractory status epilepticus
     Dosage: 1000 MG/KG, 1X/DAY
     Route: 042
  9. LACOSAMIDE [Suspect]
     Active Substance: LACOSAMIDE
     Indication: New onset refractory status epilepticus
     Dosage: 300 MG, 2X/DAY
  10. OXCARBAZEPINE [Suspect]
     Active Substance: OXCARBAZEPINE
     Indication: New onset refractory status epilepticus
     Dosage: 450 MG, 3X/DAY
  11. PENTOBARBITAL [Suspect]
     Active Substance: PENTOBARBITAL
     Indication: New onset refractory status epilepticus
     Dosage: 5.75 MG/KG/HR
  12. PERAMPANEL [Suspect]
     Active Substance: PERAMPANEL
     Indication: New onset refractory status epilepticus
     Dosage: 12 MG, DAILY
  13. PHENOBARBITAL [Suspect]
     Active Substance: PHENOBARBITAL
     Indication: New onset refractory status epilepticus
     Dosage: VARIOUS DOSES
  14. PREGABALIN [Suspect]
     Active Substance: PREGABALIN
     Indication: New onset refractory status epilepticus
     Dosage: 200 MG, 3X/DAY
  15. TOCILIZUMAB [Suspect]
     Active Substance: TOCILIZUMAB
     Indication: New onset refractory status epilepticus
     Dosage: 2 DOSES 4 MG/KG
  16. TOCILIZUMAB [Suspect]
     Active Substance: TOCILIZUMAB
     Dosage: 2 DOSES 8 MG/KG
  17. TOPIRAMATE [Suspect]
     Active Substance: TOPIRAMATE
     Indication: New onset refractory status epilepticus
     Dosage: 200 MG, 2X/DAY
  18. VALPROIC ACID [Suspect]
     Active Substance: VALPROIC ACID
     Indication: New onset refractory status epilepticus
     Dosage: 1 G, 4X/DAY

REACTIONS (1)
  - Drug ineffective [Unknown]
